FAERS Safety Report 21010873 (Version 1)
Quarter: 2022Q2

REPORT INFORMATION
  Report Type: Report from Study
  Country: JP (occurrence: None)
  Receive Date: 20220627
  Receipt Date: 20220627
  Transmission Date: 20220720
  Serious: Yes (Life-Threatening, Other)
  Sender: FDA-Public Use
  Company Number: 2021A545468

PATIENT
  Age: 78 Year
  Sex: Female
  Weight: 36 kg

DRUGS (16)
  1. CALQUENCE [Suspect]
     Active Substance: ACALABRUTINIB
     Indication: Chronic lymphocytic leukaemia
     Route: 048
     Dates: start: 20210610, end: 20210616
  2. CALQUENCE [Suspect]
     Active Substance: ACALABRUTINIB
     Indication: Chronic lymphocytic leukaemia
     Dosage: NUMBER OF SEPARATE DOSAGES UNKNOWN
     Route: 048
     Dates: start: 20210624, end: 20210804
  3. VALGANCICLOVIR [Suspect]
     Active Substance: VALGANCICLOVIR
     Indication: Cytomegalovirus infection
     Dosage: AFTER BREAKFAST AND DINNER
     Route: 048
     Dates: start: 20210615, end: 20210616
  4. VALGANCICLOVIR [Suspect]
     Active Substance: VALGANCICLOVIR
     Indication: Cytomegalovirus infection
     Dosage: AFTER BREAKFAST AND DINNER
     Route: 048
     Dates: start: 20210714, end: 20210803
  5. ONEALFA [Concomitant]
     Active Substance: ALFACALCIDOL
     Route: 048
  6. LUNESTA [Concomitant]
     Active Substance: ESZOPICLONE
     Route: 048
  7. CONSTAN [Concomitant]
     Route: 048
  8. VONOPRAZAN FUMARATE [Concomitant]
     Active Substance: VONOPRAZAN FUMARATE
     Dosage: AFTER DINNER, FROM 10-JUN-2021 UNTIL 11-JUN-2021: 40 MG, FROM 12-JUN-2021 UNTIL 16-JUN-2021: 20 MG
     Route: 048
  9. SULFAMETHOXAZOLE\TRIMETHOPRIM [Concomitant]
     Active Substance: SULFAMETHOXAZOLE\TRIMETHOPRIM
     Route: 048
  10. URSO [Concomitant]
     Active Substance: URSODIOL
     Route: 048
  11. FAMOTIDINE [Concomitant]
     Active Substance: FAMOTIDINE
     Route: 048
  12. AZOSEMIDE [Concomitant]
     Active Substance: AZOSEMIDE
     Route: 048
  13. CORTRIL [Concomitant]
     Active Substance: HYDROCORTISONE
     Route: 048
  14. POTASSIUM ASPARTATE [Concomitant]
     Active Substance: POTASSIUM ASPARTATE
     Route: 048
  15. LOPERAMIDE [Concomitant]
     Active Substance: LOPERAMIDE
     Dosage: WHEN DIARRHOEA, FROM 28-JUL-2021 UNTIL 03-AUG-2021: 1 MG, ON 04-AUG-2021: 2 MG
     Route: 048
  16. SODIUM CHLORIDE [Concomitant]
     Active Substance: SODIUM CHLORIDE
     Dosage: ON 15-JUN-2021: 50 ML, FROM 16-JUN-2021 UNTIL 28-JUN-2021: 100 ML
     Route: 041

REACTIONS (3)
  - Neutrophil count decreased [Recovering/Resolving]
  - Lower gastrointestinal haemorrhage [Recovered/Resolved]
  - White blood cell count decreased [Recovering/Resolving]

NARRATIVE: CASE EVENT DATE: 20210616
